FAERS Safety Report 9676142 (Version 5)
Quarter: 2014Q1

REPORT INFORMATION
  Report Type: Report from Study
  Country: US (occurrence: US)
  Receive Date: 20131107
  Receipt Date: 20140326
  Transmission Date: 20141002
  Serious: Yes (Hospitalization)
  Sender: FDA-Public Use
  Company Number: US-ACTELION-A-US2013-86862

PATIENT
  Age: 67 Year
  Sex: Male

DRUGS (7)
  1. VENTAVIS [Suspect]
     Indication: PULMONARY ARTERIAL HYPERTENSION
     Dosage: 2.5 MCG
     Route: 055
     Dates: start: 20130801
  2. VELETRI [Suspect]
     Indication: PULMONARY ARTERIAL HYPERTENSION
     Dosage: 18 NG/KG, PER MIN
     Route: 042
     Dates: start: 20131009
  3. VELETRI [Suspect]
     Dosage: 11 NG/KG, UNK
     Route: 042
     Dates: start: 20100909
  4. FENTANYL [Suspect]
  5. FLOLAN [Concomitant]
     Dosage: UNK
     Dates: start: 2001
  6. COUMADIN [Concomitant]
  7. RIOCIGUAT [Concomitant]

REACTIONS (11)
  - Mental impairment [Not Recovered/Not Resolved]
  - Coordination abnormal [Not Recovered/Not Resolved]
  - Aphasia [Not Recovered/Not Resolved]
  - Pain in extremity [Not Recovered/Not Resolved]
  - Condition aggravated [Not Recovered/Not Resolved]
  - Blood pressure systolic decreased [Unknown]
  - Pain [Unknown]
  - Cough [Unknown]
  - Nausea [Unknown]
  - Muscular weakness [Not Recovered/Not Resolved]
  - Amnesia [Unknown]
